FAERS Safety Report 5129321-4 (Version None)
Quarter: 2006Q4

REPORT INFORMATION
  Report Type: 
  Country: None (occurrence: None)
  Receive Date: 20061011
  Receipt Date: 20060919
  Transmission Date: 20070319
  Serious: Yes (Other)
  Sender: FDA-Public Use
  Company Number: ZA200609001055

PATIENT
  Age: 20 Year
  Sex: Female

DRUGS (3)
  1. CYMBALTA [Suspect]
     Indication: MAJOR DEPRESSION
     Dosage: 60 MG, DAILY (1/D), ORAL
     Route: 048
     Dates: start: 20060314, end: 20060831
  2. LAMICTAL [Concomitant]
  3. BUSPAR/AUS/ (AUS (BUSPIRONE HYDROCHLORIDE) [Concomitant]

REACTIONS (2)
  - LOWER GASTROINTESTINAL HAEMORRHAGE [None]
  - UPPER GASTROINTESTINAL HAEMORRHAGE [None]
